FAERS Safety Report 6261390-0 (Version None)
Quarter: 2009Q3

REPORT INFORMATION
  Report Type: 
  Country: None (occurrence: None)
  Receive Date: 20090709
  Receipt Date: 20090629
  Transmission Date: 20100115
  Serious: Yes (Death, Hospitalization)
  Sender: FDA-Public Use
  Company Number: US-KINGPHARMUSA00001-K200900770

PATIENT
  Age: 57 Year
  Sex: Female

DRUGS (10)
  1. LEVOXYL [Suspect]
     Indication: HYPOTHYROIDISM
     Dosage: 150 MCG, QD
  2. LEVOXYL [Suspect]
     Dosage: 50 MCG, QD
  3. LEVOXYL [Suspect]
     Dosage: 100 MCG, QD
  4. SUNITINIB [Interacting]
     Indication: GASTROINTESTINAL CANCER METASTATIC
     Dosage: 50 MG, QD
     Dates: start: 20040701
  5. PARACETAMOL [Interacting]
     Indication: HEADACHE
     Dosage: 2 G, QW
  6. PARACETAMOL [Interacting]
     Dosage: 1 G, QW
  7. TYLENOL PM [Interacting]
     Indication: INSOMNIA
     Dosage: 500 MG, QPM
  8. MONTELUKAST SODIUM [Concomitant]
     Indication: ASTHMA
     Dosage: 10 MG, QD
  9. CETIRIZINE HYDROCHLORIDE [Concomitant]
     Indication: ASTHMA
     Dosage: 10 MG, QD
  10. ALBUTEROL [Concomitant]
     Indication: ASTHMA
     Dosage: UNK

REACTIONS (8)
  - ACUTE HEPATIC FAILURE [None]
  - ASTHENIA [None]
  - DECREASED APPETITE [None]
  - DIARRHOEA [None]
  - DRUG INTERACTION [None]
  - METABOLIC ACIDOSIS [None]
  - NAUSEA [None]
  - RENAL FAILURE [None]
